FAERS Safety Report 4416493-X (Version None)
Quarter: 2004Q2

REPORT INFORMATION
  Report Type: 
  Country: None (occurrence: None)
  Receive Date: 20040628
  Receipt Date: 20030908
  Transmission Date: 20050107
  Serious: Yes (Hospitalization)
  Sender: FDA-Public Use
  Company Number: 346606

PATIENT
  Sex: Female

DRUGS (1)
  1. CELLCEPT [Suspect]
     Indication: RENAL TRANSPLANT
     Dosage: 500 MG 2 PER DAY ORAL
     Route: 048
     Dates: start: 20030815

REACTIONS (6)
  - ARTHRALGIA [None]
  - BACK PAIN [None]
  - BUTTOCK PAIN [None]
  - INSOMNIA [None]
  - NERVE COMPRESSION [None]
  - PYREXIA [None]
